FAERS Safety Report 19695163 (Version 6)
Quarter: 2021Q4

REPORT INFORMATION
  Report Type: Report from Study
  Country: US (occurrence: US)
  Receive Date: 20210812
  Receipt Date: 20211118
  Transmission Date: 20220303
  Serious: Yes (Other)
  Sender: FDA-Public Use
  Company Number: NVSC2021US182823

PATIENT
  Age: 74 Year
  Sex: Female

DRUGS (1)
  1. ENTRESTO [Suspect]
     Active Substance: SACUBITRIL\VALSARTAN
     Indication: Product used for unknown indication
     Dosage: 50 MG,(24/26)
     Route: 065
     Dates: start: 202106

REACTIONS (11)
  - Croup infectious [Recovering/Resolving]
  - Rhinorrhoea [Unknown]
  - Sinus congestion [Recovering/Resolving]
  - COVID-19 [Recovering/Resolving]
  - Influenza [Recovering/Resolving]
  - Nasal discomfort [Recovering/Resolving]
  - Dyspepsia [Not Recovered/Not Resolved]
  - Arthralgia [Recovered/Resolved]
  - Nasopharyngitis [Recovering/Resolving]
  - Cough [Recovered/Resolved]
  - Dizziness [Not Recovered/Not Resolved]

NARRATIVE: CASE EVENT DATE: 20210801
